FAERS Safety Report 19332266 (Version 2)
Quarter: 2021Q2

REPORT INFORMATION
  Report Type: Report from Study
  Country: GR (occurrence: GR)
  Receive Date: 20210529
  Receipt Date: 20210608
  Transmission Date: 20210717
  Serious: Yes (Hospitalization, Other)
  Sender: FDA-Public Use
  Company Number: GR-JNJFOC-20210435171

PATIENT
  Age: 55 Year
  Sex: Female
  Weight: 86 kg

DRUGS (9)
  1. REMICADE [Suspect]
     Active Substance: INFLIXIMAB
     Indication: COLITIS ULCERATIVE
     Route: 042
     Dates: start: 201702
  2. ASACOL [Concomitant]
     Active Substance: MESALAMINE
     Dosage: ASACOL (MESALAZINE) SUPPOSITORIES AT A DOSAGE OF 1/NIGHT, SHE WILL RECEIVE THEM UNTIL 21 JUN 2021 AS
  3. MEDROL [Concomitant]
     Active Substance: METHYLPREDNISOLONE
     Indication: MUSCLE CONTRACTIONS INVOLUNTARY
  4. AZATHIOPRIN [Concomitant]
     Active Substance: AZATHIOPRINE
     Indication: BEHCET^S SYNDROME
     Dosage: 150 MG/DAY
  5. MEDROL [Concomitant]
     Active Substance: METHYLPREDNISOLONE
     Indication: HAEMATOCHEZIA
     Dosage: MEDROL (METHYLPREDNISOLONE) TABLET 16MG AT A DOSAGE OF 1/DAY.
  6. LAPRAZOL [Concomitant]
     Active Substance: LANSOPRAZOLE
     Dosage: LAPRAZOL (LANSOPRAZOLE) TABLETS AT A DOSAGE OF 1/MORNING AND 1/NIGHT FOR PROTECTION OF THE STOMACH.
  7. MEDROL [Concomitant]
     Active Substance: METHYLPREDNISOLONE
     Indication: PAIN
  8. REMICADE [Suspect]
     Active Substance: INFLIXIMAB
     Route: 042
     Dates: start: 20210414
  9. MEDROL [Concomitant]
     Active Substance: METHYLPREDNISOLONE
     Indication: DIARRHOEA

REACTIONS (7)
  - Off label use [Unknown]
  - Diarrhoea [Not Recovered/Not Resolved]
  - Clostridium difficile infection [Recovered/Resolved]
  - Inappropriate schedule of product administration [Unknown]
  - Haematochezia [Recovered/Resolved]
  - Pain [Recovered/Resolved]
  - Product dose omission issue [Unknown]

NARRATIVE: CASE EVENT DATE: 20210519
